FAERS Safety Report 12222976 (Version 1)
Quarter: 2016Q1

REPORT INFORMATION
  Report Type: Spontaneous
  Country: US (occurrence: US)
  Receive Date: 20160330
  Receipt Date: 20160330
  Transmission Date: 20160526
  Serious: No
  Sender: FDA-Public Use
  Company Number: US-PERRIGO-15US010004

PATIENT
  Age: 94 Year
  Sex: Female
  Weight: 58.96 kg

DRUGS (1)
  1. ACETAMINOPHEN. [Suspect]
     Active Substance: ACETAMINOPHEN
     Indication: ARTHRALGIA
     Dosage: 650 MG, QD
     Route: 048
     Dates: start: 20150922, end: 20150923

REACTIONS (3)
  - Eye contusion [Unknown]
  - Eye swelling [Unknown]
  - Underdose [Recovered/Resolved]

NARRATIVE: CASE EVENT DATE: 20150922
